FAERS Safety Report 8981403 (Version 1)
Quarter: 2012Q4

REPORT INFORMATION
  Report Type: 
  Country: US (occurrence: US)
  Receive Date: 20121221
  Receipt Date: 20121221
  Transmission Date: 20130627
  Serious: No
  Sender: FDA-Public Use
  Company Number: US-PFIZER INC-2012324930

PATIENT
  Sex: Female

DRUGS (2)
  1. PRISTIQ [Suspect]
     Dosage: 50 mg, UNK
     Dates: start: 201212, end: 201212
  2. PRISTIQ [Suspect]
     Dosage: 50 mg, alternate day
     Dates: start: 201212

REACTIONS (3)
  - Dizziness [Unknown]
  - Malaise [Unknown]
  - Fatigue [Unknown]
